FAERS Safety Report 12484563 (Version 3)
Quarter: 2017Q4

REPORT INFORMATION
  Report Type: Spontaneous
  Country: GB (occurrence: GB)
  Receive Date: 20160621
  Receipt Date: 20171231
  Transmission Date: 20180320
  Serious: Yes (Hospitalization)
  Sender: FDA-Public Use
  Company Number: GB-TEVA-667762ACC

PATIENT
  Sex: Female

DRUGS (5)
  1. MYFENAX [Suspect]
     Active Substance: MYCOPHENOLATE MOFETIL
     Indication: IMMUNOSUPPRESSION
     Route: 065
  2. PREDNISOLONE (ACTAVIS GENERIC) [Suspect]
     Active Substance: PREDNISOLONE
     Indication: IMMUNOSUPPRESSION
     Route: 065
  3. ADOPORT [Suspect]
     Active Substance: TACROLIMUS
     Indication: IMMUNOSUPPRESSION
     Route: 065
  4. ADOPORT [Suspect]
     Active Substance: TACROLIMUS
     Route: 065
  5. ADOPORT [Suspect]
     Active Substance: TACROLIMUS
     Route: 065

REACTIONS (3)
  - Dehydration [Unknown]
  - Gait inability [Unknown]
  - Dizziness [Unknown]
